FAERS Safety Report 22027907 (Version 1)
Quarter: 2023Q1

REPORT INFORMATION
  Report Type: Spontaneous
  Country: LV (occurrence: LV)
  Receive Date: 20230223
  Receipt Date: 20230223
  Transmission Date: 20230418
  Serious: Yes (Other)
  Sender: FDA-Public Use
  Company Number: LV-002147023-NVSC2023LV037135

PATIENT
  Sex: Female

DRUGS (1)
  1. PIQRAY [Suspect]
     Active Substance: ALPELISIB
     Indication: Breast cancer
     Dosage: 2 DOSAGE FORM, QD
     Route: 065
     Dates: start: 20221111, end: 20230209

REACTIONS (6)
  - Hypothyroidism [Unknown]
  - Urinary incontinence [Unknown]
  - Memory impairment [Unknown]
  - Somnolence [Unknown]
  - Disturbance in attention [Unknown]
  - Fatigue [Unknown]
